FAERS Safety Report 9486093 (Version 1)
Quarter: 2013Q3

REPORT INFORMATION
  Report Type: Spontaneous
  Country: US (occurrence: None)
  Receive Date: 20130827
  Receipt Date: 20130827
  Transmission Date: 20140515
  Serious: Yes (Life-Threatening, Other)
  Sender: FDA-Public Use
  Company Number: None

PATIENT
  Age: 73 Year
  Sex: Male
  Weight: 61.24 kg

DRUGS (1)
  1. COMBIVENT RESPIMAT [Suspect]
     Dosage: AS NEEDED
     Route: 055

REACTIONS (1)
  - Device issue [None]
